FAERS Safety Report 12976163 (Version 1)
Quarter: 2016Q4

REPORT INFORMATION
  Report Type: Spontaneous
  Country: CA (occurrence: CA)
  Receive Date: 20161126
  Receipt Date: 20161126
  Transmission Date: 20170207
  Serious: Yes (Hospitalization)
  Sender: FDA-Public Use
  Company Number: CA-ASTRAZENECA-2016SF23325

PATIENT
  Age: 54 Year
  Sex: Female

DRUGS (15)
  1. IRON [Concomitant]
     Active Substance: IRON
  2. NITROGLYCERIN. [Concomitant]
     Active Substance: NITROGLYCERIN
  3. PANTOLOC [Concomitant]
     Active Substance: PANTOPRAZOLE SODIUM
  4. CRESTOR [Concomitant]
     Active Substance: ROSUVASTATIN CALCIUM
  5. SYNTHROID [Concomitant]
     Active Substance: LEVOTHYROXINE SODIUM
  6. BUPROPION. [Concomitant]
     Active Substance: BUPROPION
  7. LASIX [Concomitant]
     Active Substance: FUROSEMIDE
  8. METFORMIN [Concomitant]
     Active Substance: METFORMIN HYDROCHLORIDE
  9. FORXIGA [Suspect]
     Active Substance: DAPAGLIFLOZIN
     Indication: DIABETES MELLITUS
     Route: 048
  10. CIPRALEX [Concomitant]
     Active Substance: ESCITALOPRAM OXALATE
  11. NOVORAPID [Concomitant]
     Active Substance: INSULIN ASPART
  12. SALBUTAMOL [Concomitant]
     Active Substance: ALBUTEROL
  13. CLONAZEPAM. [Concomitant]
     Active Substance: CLONAZEPAM
  14. LANTUS [Concomitant]
     Active Substance: INSULIN GLARGINE
  15. NOVO-DILITIAZEM SR [Concomitant]

REACTIONS (1)
  - Diabetic ketoacidosis [Unknown]
